FAERS Safety Report 11022883 (Version 3)
Quarter: 2015Q3

REPORT INFORMATION
  Report Type: Spontaneous
  Country: US (occurrence: US)
  Receive Date: 20150413
  Receipt Date: 20150723
  Transmission Date: 20151125
  Serious: Yes (Death, Life-Threatening, Hospitalization, Disabling, Other)
  Sender: FDA-Public Use
  Company Number: US-GLAXOSMITHKLINE-US2015GSK048339

PATIENT
  Age: 54 Year
  Sex: Male

DRUGS (16)
  1. CRESTOR [Concomitant]
     Active Substance: ROSUVASTATIN CALCIUM
  2. VFEND [Concomitant]
     Active Substance: VORICONAZOLE
  3. ARRANON [Suspect]
     Active Substance: NELARABINE
     Indication: ACUTE LYMPHOCYTIC LEUKAEMIA RECURRENT
     Dosage: 1200 MG, QD
     Route: 042
     Dates: start: 20150302, end: 20150306
  4. NORVASC [Concomitant]
     Active Substance: AMLODIPINE BESYLATE
  5. BACTRIM [Concomitant]
     Active Substance: SULFAMETHOXAZOLE\TRIMETHOPRIM
  6. ALLOPURINOL. [Concomitant]
     Active Substance: ALLOPURINOL
  7. DECADRON [Concomitant]
     Active Substance: DEXAMETHASONE
  8. COLACE [Concomitant]
     Active Substance: DOCUSATE SODIUM
  9. 6MP [Concomitant]
     Active Substance: MERCAPTOPURINE
  10. CYTRABINE [Concomitant]
  11. CIPRO [Concomitant]
     Active Substance: CIPROFLOXACIN HYDROCHLORIDE
  12. PEPCID [Concomitant]
     Active Substance: FAMOTIDINE
  13. FLUCONAZOLE. [Concomitant]
     Active Substance: FLUCONAZOLE
  14. ZOFRAN [Concomitant]
     Active Substance: ONDANSETRON HYDROCHLORIDE
  15. ACYCLOVIR. [Concomitant]
     Active Substance: ACYCLOVIR
  16. TACROLIMUS. [Concomitant]
     Active Substance: TACROLIMUS

REACTIONS (8)
  - Demyelination [Fatal]
  - Guillain-Barre syndrome [Fatal]
  - Sepsis [Fatal]
  - Neurotoxicity [Fatal]
  - Acute lymphocytic leukaemia [Fatal]
  - Peripheral motor neuropathy [Recovering/Resolving]
  - Paraparesis [Fatal]
  - Malignant neoplasm progression [Fatal]

NARRATIVE: CASE EVENT DATE: 20150319
